FAERS Safety Report 4413960-X (Version None)
Quarter: 2004Q3

REPORT INFORMATION
  Report Type: 
  Country: None (occurrence: None)
  Receive Date: 20040729
  Receipt Date: 20040726
  Transmission Date: 20050211
  Serious: Yes (Death)
  Sender: FDA-Public Use
  Company Number: TPG0T01266105

PATIENT
  Age: 85 Year
  Sex: Male

DRUGS (3)
  1. TRENANTONE (LEUPRORELIN) (INJECTION) [Suspect]
     Indication: PROSTATE CANCER
     Dosage: 11.25 MG (11.25 MG, 1 IN 3 M)  SUBCUTANEOUS
     Route: 058
     Dates: start: 19990111, end: 19990111
  2. FLUTAMIDE [Concomitant]
  3. FUROSEMIDE [Concomitant]

REACTIONS (2)
  - MALIGNANT NEOPLASM PROGRESSION [None]
  - PROSTATE CANCER METASTATIC [None]
